FAERS Safety Report 4443776-X (Version None)
Quarter: 2004Q3

REPORT INFORMATION
  Report Type: 
  Country: None (occurrence: None)
  Receive Date: 20040830
  Receipt Date: 20040818
  Transmission Date: 20050211
  Serious: Yes (Other)
  Sender: FDA-Public Use
  Company Number: WAES 0405USA01725

PATIENT
  Age: 27 Month

DRUGS (2)
  1. COSMEGEN [Suspect]
     Indication: RHABDOMYOSARCOMA
  2. CYCLOPHOSPHAMIDE [Suspect]
     Indication: RHABDOMYOSARCOMA

REACTIONS (4)
  - HEPATOTOXICITY [None]
  - LIFE SUPPORT [None]
  - LIVER DISORDER [None]
  - VENOOCCLUSIVE DISEASE [None]
